FAERS Safety Report 7138814-X (Version None)
Quarter: 2010Q4

REPORT INFORMATION
  Report Type: 
  Country: None (occurrence: None)
  Receive Date: 20101206
  Receipt Date: 20101129
  Transmission Date: 20110411
  Serious: Yes (Life-Threatening, Hospitalization)
  Sender: FDA-Public Use
  Company Number: RU-ELI_LILLY_AND_COMPANY-RU201011007101

PATIENT
  Sex: Female

DRUGS (3)
  1. HUMALOG [Suspect]
     Indication: TYPE 1 DIABETES MELLITUS
     Dosage: 6 U, 3/D
     Dates: start: 20080101
  2. HUMALOG [Suspect]
     Dosage: 8 U, 3/D
     Dates: start: 20080101
  3. HUMULIN N [Suspect]
     Indication: TYPE 1 DIABETES MELLITUS
     Dosage: 16 U, 2/D

REACTIONS (4)
  - BACTERIURIA [None]
  - DRUG EXPOSURE DURING PREGNANCY [None]
  - RENAL FAILURE ACUTE [None]
  - SUBCLAVIAN ARTERY THROMBOSIS [None]
